FAERS Safety Report 7727078-1 (Version None)
Quarter: 2011Q3

REPORT INFORMATION
  Report Type: 
  Country: None (occurrence: None)
  Receive Date: 20110902
  Receipt Date: 20110822
  Transmission Date: 20111222
  Serious: Yes (Other)
  Sender: FDA-Public Use
  Company Number: MX-UCBSA-039949

PATIENT
  Sex: Male
  Weight: 85 kg

DRUGS (2)
  1. GAPRIDOL [Concomitant]
     Indication: CONVULSION
     Route: 048
     Dates: start: 20090101
  2. VIMPAT [Suspect]
     Indication: CONVULSION
     Route: 048
     Dates: start: 20110808, end: 20110821

REACTIONS (5)
  - DIZZINESS [None]
  - PYREXIA [None]
  - ASTHENIA [None]
  - VISION BLURRED [None]
  - COORDINATION ABNORMAL [None]
